FAERS Safety Report 9995670 (Version 1)
Quarter: 2014Q1

REPORT INFORMATION
  Report Type: Spontaneous
  Country: US (occurrence: US)
  Receive Date: 20140311
  Receipt Date: 20140311
  Transmission Date: 20141002
  Serious: No
  Sender: FDA-Public Use
  Company Number: US-GALDERMA-US13002493

PATIENT
  Age: 32 Year
  Sex: Female

DRUGS (5)
  1. TRI-LUMA CREAM (FLUOCINOLONE ACETONIDE 0.01%, HYDROQUINONE 4%, TRETINO [Suspect]
     Indication: CHLOASMA
     Route: 061
     Dates: start: 20130805, end: 20130805
  2. DEVITA ALOE VERA FACIAL CLEANSER [Concomitant]
     Indication: THERAPEUTIC SKIN CARE TOPICAL
     Route: 061
     Dates: start: 20130726
  3. DEVITA TONER [Concomitant]
     Route: 061
     Dates: start: 201307
  4. PUR MINERALS MAKEUP [Concomitant]
     Dates: start: 2011
  5. ALBA JASMINE AND VITAMIN E FACE CREAM [Concomitant]
     Dates: start: 2010

REACTIONS (5)
  - Contusion [Recovered/Resolved]
  - Pruritus [Recovered/Resolved]
  - Erythema [Recovered/Resolved]
  - Rash [Recovered/Resolved]
  - Skin exfoliation [Recovered/Resolved]
